FAERS Safety Report 15892397 (Version 1)
Quarter: 2019Q1

REPORT INFORMATION
  Report Type: Report from Study
  Country: US (occurrence: US)
  Receive Date: 20190130
  Receipt Date: 20190130
  Transmission Date: 20190417
  Serious: No
  Sender: FDA-Public Use
  Company Number: US-EXELIXIS-CABO-18014846

PATIENT
  Sex: Female
  Weight: 55.37 kg

DRUGS (1)
  1. CABOMETYX [Suspect]
     Active Substance: CABOZANTINIB S-MALATE
     Indication: RENAL CANCER
     Dosage: 40 MG, QD
     Route: 048
     Dates: start: 20180413, end: 2018

REACTIONS (8)
  - Fatigue [Unknown]
  - Ageusia [Unknown]
  - Flatulence [Unknown]
  - Blood pressure increased [Unknown]
  - Diarrhoea [Unknown]
  - Photosensitivity reaction [Unknown]
  - Peripheral swelling [Unknown]
  - Skin cancer [Unknown]

NARRATIVE: CASE EVENT DATE: 2018
